FAERS Safety Report 12896652 (Version 1)
Quarter: 2016Q4

REPORT INFORMATION
  Report Type: Spontaneous
  Country: US (occurrence: US)
  Receive Date: 20161031
  Receipt Date: 20161031
  Transmission Date: 20170207
  Serious: No
  Sender: FDA-Public Use
  Company Number: US-GLAXOSMITHKLINE-US2016157978

PATIENT
  Age: 52 Year
  Sex: Female

DRUGS (1)
  1. FLONASE [Suspect]
     Active Substance: FLUTICASONE PROPIONATE
     Indication: HYPERSENSITIVITY
     Dosage: UNK
     Dates: start: 20160927, end: 20161015

REACTIONS (16)
  - Sleep disorder [Unknown]
  - Oropharyngeal pain [Recovered/Resolved]
  - Cough [Unknown]
  - Dizziness [Recovered/Resolved]
  - Viral pharyngitis [Not Recovered/Not Resolved]
  - Retching [Unknown]
  - Thirst [Recovering/Resolving]
  - Middle insomnia [Unknown]
  - Fatigue [Unknown]
  - Productive cough [Unknown]
  - Dyspnoea [Recovered/Resolved]
  - Aphasia [Unknown]
  - Pharyngitis [Not Recovered/Not Resolved]
  - Adverse reaction [Unknown]
  - Bronchitis [Not Recovered/Not Resolved]
  - Sputum discoloured [Unknown]

NARRATIVE: CASE EVENT DATE: 201610
